FAERS Safety Report 7820860-1 (Version None)
Quarter: 2011Q4

REPORT INFORMATION
  Report Type: 
  Country: None (occurrence: None)
  Receive Date: 20111018
  Receipt Date: 20111013
  Transmission Date: 20120403
  Serious: Yes (Death)
  Sender: FDA-Public Use
  Company Number: JP-BRISTOL-MYERS SQUIBB COMPANY-16093312

PATIENT
  Age: 64 Year
  Sex: Female
  Weight: 29 kg

DRUGS (10)
  1. HOKUNALIN [Concomitant]
     Route: 050
     Dates: end: 20110901
  2. DORIPENEM MONOHYDRATE [Concomitant]
     Indication: PNEUMONIA
     Route: 042
     Dates: end: 20110831
  3. RISPERDAL [Suspect]
     Dosage: ALSO TAKEN AS 3 IN A DY
     Route: 048
     Dates: start: 20110810, end: 20110901
  4. TIAPRIDE HCL [Concomitant]
     Route: 048
     Dates: end: 20110901
  5. UBRETID [Concomitant]
     Route: 048
     Dates: end: 20110901
  6. FERRUM [Concomitant]
     Route: 048
     Dates: end: 20110901
  7. DEPAS [Concomitant]
     Dosage: DF=0.5MG* 2 TIMES+1MG 1 TIME
     Route: 048
     Dates: end: 20110901
  8. MUCOSTA [Concomitant]
     Route: 048
     Dates: end: 20110901
  9. ROHYPNOL [Concomitant]
     Route: 048
     Dates: end: 20110901
  10. MAXIPIME [Suspect]
     Indication: PNEUMONIA
     Route: 041
     Dates: start: 20110901, end: 20110902

REACTIONS (3)
  - HEPATIC FUNCTION ABNORMAL [None]
  - HYPOGLYCAEMIA [None]
  - HYPOTENSION [None]
